FAERS Safety Report 15073037 (Version 3)
Quarter: 2018Q3

REPORT INFORMATION
  Report Type: Spontaneous
  Country: ES (occurrence: ES)
  Receive Date: 20180627
  Receipt Date: 20180804
  Transmission Date: 20181010
  Serious: Yes (Hospitalization, Other)
  Sender: FDA-Public Use
  Company Number: ES-AUROBINDO-AUR-APL-2018-030872

PATIENT
  Age: 67 Year
  Sex: Male

DRUGS (15)
  1. QUETIAPINE FILM?COATED TABLET [Suspect]
     Active Substance: QUETIAPINE
     Indication: SCHIZOPHRENIA
     Dosage: 300 MILLIGRAM EVERY 24 HOURS SINCE SIX YEARS OF AGE
     Route: 065
  2. BIPERIDEN [Suspect]
     Active Substance: BIPERIDEN
     Indication: SCHIZOPHRENIA
     Dosage: 1 VIAL OF 5 MG, EVERY 4 WEEKS ,FOR 6 YEARS UP TO DATE
  3. BIPERIDEN [Suspect]
     Active Substance: BIPERIDEN
     Dosage: 4 MG SLOW RELEASE, 1 TABLET EVERY 24 HOURS
  4. BIPERIDEN [Suspect]
     Active Substance: BIPERIDEN
     Dosage: 1 VIAL OF 5 MG, EVERY 4 WEEKS
  5. QUETIAPINE FILM?COATED TABLET [Suspect]
     Active Substance: QUETIAPINE
     Dosage: 200 MILLIGRAM, DAILY
     Route: 065
  6. BIPERIDEN [Suspect]
     Active Substance: BIPERIDEN
     Dosage: 1 DOSAGE FORM, DAILY
     Route: 065
  7. BIPERIDEN [Suspect]
     Active Substance: BIPERIDEN
     Dosage: 8 MILLIGRAM, DAILY
  8. ATORVASTATIN [Suspect]
     Active Substance: ATORVASTATIN
     Indication: DYSLIPIDAEMIA
     Dosage: 10 MILLIGRAM, DAILY
     Route: 065
     Dates: start: 20130501
  9. DIAZEPAM. [Suspect]
     Active Substance: DIAZEPAM
     Dosage: 5 MILLIGRAM
  10. DIAZEPAM. [Suspect]
     Active Substance: DIAZEPAM
     Indication: EXTRAPYRAMIDAL DISORDER
     Dosage: 2.5 MILLIGRAM
     Route: 065
  11. FLUPHENAZINE                       /00000604/ [Suspect]
     Active Substance: FLUPHENAZINE DECANOATE
     Indication: PRODUCT USED FOR UNKNOWN INDICATION
     Dosage: 25 MILLIGRAM (1 VIAL OF 25 MG EVERY 4 WEEKS)
     Route: 065
  12. DIAZEPAM. [Suspect]
     Active Substance: DIAZEPAM
     Dosage: 7.5 MILLIGRAM
     Route: 065
  13. DIAZEPAM. [Suspect]
     Active Substance: DIAZEPAM
     Dosage: 1 VIAL OF 5 MG, EVERY 4 WEEKS
  14. FLUPHENAZINE [Interacting]
     Active Substance: FLUPHENAZINE
     Indication: SCHIZOPHRENIA
     Dosage: 1 VIAL OF 25 MILLIGRAM EVERY 4 WEEKS
     Route: 065
  15. BIPERIDEN [Suspect]
     Active Substance: BIPERIDEN
     Indication: EXTRAPYRAMIDAL DISORDER
     Dosage: 25 MILLIGRAM EVERY 4 WEEKS
     Route: 065

REACTIONS (9)
  - Fall [Recovered/Resolved]
  - Pyrexia [Unknown]
  - Rhabdomyolysis [Recovered/Resolved]
  - Neuromuscular toxicity [Recovered/Resolved]
  - Motor dysfunction [Recovered/Resolved]
  - Toxicity to various agents [Recovered/Resolved]
  - Extrapyramidal disorder [Recovered/Resolved]
  - Drug interaction [Recovered/Resolved]
  - Loss of consciousness [Unknown]

NARRATIVE: CASE EVENT DATE: 201612
